FAERS Safety Report 8477441-9 (Version None)
Quarter: 2012Q2

REPORT INFORMATION
  Report Type: 
  Country: None (occurrence: None)
  Receive Date: 20120629
  Receipt Date: 20120626
  Transmission Date: 20120825
  Serious: Yes (Other)
  Sender: FDA-Public Use
  Company Number: PHHY2012BR045240

PATIENT
  Sex: Male

DRUGS (8)
  1. HYDROCHLOROTHIAZIDE [Concomitant]
     Dosage: 1 DF IN THE MORNING
     Route: 048
  2. SIMVASTATIN [Concomitant]
     Dosage: 2 DF, QHS
     Route: 048
  3. WARFARIN SODIUM [Concomitant]
     Dosage: 1 DF, QD
  4. DOXAZOSIN MESYLATE [Concomitant]
     Indication: PROSTATOMEGALY
     Dosage: 2 DF, QHS
     Route: 048
  5. CAPTOPRIL [Concomitant]
     Indication: HYPERTENSION
     Dosage: 2 DF, Q8H
     Route: 048
  6. FORMOTEROL FUMARATE [Suspect]
     Indication: BRONCHITIS
     Dosage: UNK UKN, UNK
     Dates: end: 20090101
  7. FORMOTEROL FUMARATE [Suspect]
     Dosage: ONCE AT NIGHT
  8. METOPROLOL SUCCINATE [Concomitant]
     Dosage: 0.5 DF, QD
     Route: 048

REACTIONS (4)
  - MALAISE [None]
  - DYSPNOEA [None]
  - UNDERDOSE [None]
  - CEREBROVASCULAR ACCIDENT [None]
